FAERS Safety Report 8289488-6 (Version None)
Quarter: 2012Q2

REPORT INFORMATION
  Report Type: 
  Country: None (occurrence: None)
  Receive Date: 20120417
  Receipt Date: 20120409
  Transmission Date: 20120825
  Serious: Yes (Other)
  Sender: FDA-Public Use
  Company Number: US-ASTELLAS-2012US003126

PATIENT
  Sex: Female
  Weight: 83 kg

DRUGS (2)
  1. ERLOTINIB HYDROCHLORIDE [Suspect]
     Indication: PRODUCT USED FOR UNKNOWN INDICATION
     Dosage: 150 MG, UID/QD
     Route: 048
     Dates: start: 20111022
  2. COSOPT [Concomitant]
     Indication: GLAUCOMA
     Dosage: UNK
     Route: 065
     Dates: start: 20050301, end: 20120213

REACTIONS (7)
  - OCULAR HYPERAEMIA [None]
  - EYE SWELLING [None]
  - DRUG INTERACTION [None]
  - NASAL ULCER [None]
  - HYPERSENSITIVITY [None]
  - GASTROOESOPHAGEAL REFLUX DISEASE [None]
  - DYSPHAGIA [None]
